FAERS Safety Report 6746520-6 (Version None)
Quarter: 2010Q2

REPORT INFORMATION
  Report Type: 
  Country: None (occurrence: None)
  Receive Date: 20100528
  Receipt Date: 20090331
  Transmission Date: 20101027
  Serious: No
  Sender: FDA-Public Use
  Company Number: US-ASTRAZENECA-2009SE22939

PATIENT
  Sex: Female

DRUGS (1)
  1. PRILOSEC OTC [Suspect]
     Dosage: UNK TABLET, 1 /DAY
     Route: 048
     Dates: start: 20090228

REACTIONS (4)
  - DRUG INEFFECTIVE [None]
  - HEPATIC PAIN [None]
  - INCORRECT DOSE ADMINISTERED [None]
  - NAUSEA [None]
